FAERS Safety Report 5694831-8 (Version None)
Quarter: 2008Q2

REPORT INFORMATION
  Report Type: 
  Country: None (occurrence: None)
  Receive Date: 20080404
  Receipt Date: 20080326
  Transmission Date: 20081010
  Serious: Yes (Hospitalization)
  Sender: FDA-Public Use
  Company Number: US-AVENTIS-200811957US

PATIENT
  Sex: Female

DRUGS (5)
  1. TAXOTERE [Suspect]
     Indication: BREAST CANCER
     Route: 042
     Dates: start: 20080325, end: 20080325
  2. CYTOXAN [Concomitant]
     Dosage: DOSE: UNK
     Dates: start: 20080306
  3. DECADRON [Concomitant]
     Dosage: DOSE: 8MG BID THE DAY BEFORE, THE DAY OF AND THE DAY AFTER TAXOTERE
     Route: 048
  4. DECADRON [Concomitant]
     Route: 042
     Dates: start: 20080325
  5. ONDANSETRON [Concomitant]
     Dosage: DOSE: UNK

REACTIONS (3)
  - ALTERED STATE OF CONSCIOUSNESS [None]
  - HEART RATE DECREASED [None]
  - HYPOTENSION [None]
